FAERS Safety Report 13102906 (Version 3)
Quarter: 2018Q1

REPORT INFORMATION
  Report Type: Spontaneous
  Country: US (occurrence: US)
  Receive Date: 20170110
  Receipt Date: 20180209
  Transmission Date: 20180508
  Serious: No
  Sender: FDA-Public Use
  Company Number: US-ACTELION-A-US2017-148128

PATIENT
  Age: 55 Year
  Sex: Female

DRUGS (12)
  1. DULOXETINE. [Concomitant]
     Active Substance: DULOXETINE
  2. GABAPENTIN. [Concomitant]
     Active Substance: GABAPENTIN
  3. NAPROXEN. [Concomitant]
     Active Substance: NAPROXEN
  4. LISINOPRIL. [Concomitant]
     Active Substance: LISINOPRIL
  5. LINZESS [Concomitant]
     Active Substance: LINACLOTIDE
  6. TIZANIDINE. [Concomitant]
     Active Substance: TIZANIDINE
  7. JANUVIA [Concomitant]
     Active Substance: SITAGLIPTIN PHOSPHATE
  8. TRAZODONE [Concomitant]
     Active Substance: TRAZODONE HYDROCHLORIDE
  9. VALCHLOR [Suspect]
     Active Substance: MECHLORETHAMINE
     Indication: MYCOSIS FUNGOIDES
     Dosage: UNK, THIN FILM TO AFFECTED SKIN
     Route: 061
     Dates: start: 20161202
  10. PRAVASTATIN. [Concomitant]
     Active Substance: PRAVASTATIN
  11. METFORMIN [Concomitant]
     Active Substance: METFORMIN HYDROCHLORIDE
  12. TRIAMCINOLONE [Concomitant]
     Active Substance: TRIAMCINOLONE

REACTIONS (9)
  - Skin discolouration [Not Recovered/Not Resolved]
  - Application site erosion [Not Recovered/Not Resolved]
  - Application site pruritus [Not Recovered/Not Resolved]
  - Application site discolouration [Not Recovered/Not Resolved]
  - Diarrhoea [Unknown]
  - Sticky skin [Not Recovered/Not Resolved]
  - Skin irritation [Unknown]
  - Application site pain [Not Recovered/Not Resolved]
  - Skin reaction [Not Recovered/Not Resolved]
